FAERS Safety Report 24837693 (Version 1)
Quarter: 2025Q1

REPORT INFORMATION
  Report Type: Spontaneous
  Country: ES (occurrence: ES)
  Receive Date: 20250113
  Receipt Date: 20250113
  Transmission Date: 20250409
  Serious: Yes (Hospitalization)
  Sender: ORGANON
  Company Number: None

PATIENT
  Age: 38 Year
  Sex: Female

DRUGS (1)
  1. NUVARING [Suspect]
     Active Substance: ETHINYL ESTRADIOL\ETONOGESTREL
     Indication: Contraception
     Dosage: 1 RING, 0.120 MG/0.015 MG EVERY 24 HOURS
     Route: 067
     Dates: start: 20211001

REACTIONS (1)
  - Positron emission tomogram [Recovered/Resolved]

NARRATIVE: CASE EVENT DATE: 20241004
